FAERS Safety Report 9325050 (Version 1)
Quarter: 2013Q2

REPORT INFORMATION
  Report Type: Spontaneous
  Country: US (occurrence: US)
  Receive Date: 20130603
  Receipt Date: 20130603
  Transmission Date: 20140414
  Serious: Yes (Other)
  Sender: FDA-Public Use
  Company Number: CHPA2013US009058

PATIENT
  Age: 73 Year
  Sex: Male

DRUGS (4)
  1. EXCEDRIN EXTRA STRENGTH [Suspect]
     Indication: BLOOD GLUCOSE INCREASED
     Dosage: 1 DF, PRN
     Route: 048
     Dates: start: 2003
  2. EXCEDRIN EXTRA STRENGTH [Suspect]
     Indication: BACK PAIN
  3. EXCEDRIN EXTRA STRENGTH [Suspect]
     Indication: HEADACHE
  4. EXCEDRIN EXTRA STRENGTH [Suspect]
     Indication: TOOTHACHE

REACTIONS (4)
  - Prostatic disorder [Recovering/Resolving]
  - Therapeutic response unexpected [Unknown]
  - Off label use [Unknown]
  - Underdose [Unknown]
